FAERS Safety Report 7075097-3 (Version None)
Quarter: 2010Q4

REPORT INFORMATION
  Report Type: 
  Country: None (occurrence: None)
  Receive Date: 20101029
  Receipt Date: 20100309
  Transmission Date: 20110411
  Serious: No
  Sender: FDA-Public Use
  Company Number: US-WYE-H14022410

PATIENT
  Age: 75 Year
  Sex: Male
  Weight: 61.29 kg

DRUGS (7)
  1. ALAVERT D-12 [Suspect]
     Indication: HYPERSENSITIVITY
     Route: 048
     Dates: start: 20100306, end: 20100307
  2. AVAPRO [Concomitant]
  3. ASPIRIN [Concomitant]
  4. FOLIC ACID [Concomitant]
  5. METFORMIN [Concomitant]
  6. LIPITOR [Concomitant]
  7. ATENOLOL [Concomitant]

REACTIONS (2)
  - DEHYDRATION [None]
  - DRY MOUTH [None]
